FAERS Safety Report 6279659-2 (Version None)
Quarter: 2009Q3

REPORT INFORMATION
  Report Type: 
  Country: None (occurrence: None)
  Receive Date: 20090723
  Receipt Date: 20090721
  Transmission Date: 20100115
  Serious: Yes (Death, Disabling)
  Sender: FDA-Public Use
  Company Number: JP-BAYER-200812932BYL

PATIENT
  Age: 72 Year
  Sex: Female
  Weight: 63 kg

DRUGS (11)
  1. NEXAVAR [Suspect]
     Indication: RENAL CELL CARCINOMA STAGE IV
     Dosage: TOTAL DAILY DOSE: 800 MG  UNIT DOSE: 200 MG
     Route: 048
     Dates: start: 20080818, end: 20081013
  2. NEXAVAR [Suspect]
     Dosage: UNIT DOSE: 200 MG
     Route: 048
     Dates: start: 20081010, end: 20081013
  3. WARFARIN SODIUM [Concomitant]
     Route: 048
     Dates: start: 20080812, end: 20080901
  4. FERROMIA [Concomitant]
     Route: 048
     Dates: start: 20080814, end: 20081010
  5. ADONA [Concomitant]
     Route: 048
     Dates: start: 20080815, end: 20081010
  6. PURSENNID [Concomitant]
     Route: 048
     Dates: start: 20080815, end: 20081010
  7. NAUZELIN [Concomitant]
     Route: 048
     Dates: start: 20080822, end: 20081010
  8. PRIMPERAN [Concomitant]
     Route: 048
     Dates: start: 20080914, end: 20081010
  9. DOGMATYL [Concomitant]
     Route: 048
     Dates: start: 20081005, end: 20081010
  10. NOVAMIN [Concomitant]
     Route: 048
     Dates: start: 20081009, end: 20081010
  11. DUROTEP [Concomitant]
     Route: 062
     Dates: start: 20081021, end: 20081023

REACTIONS (3)
  - DECREASED APPETITE [None]
  - HYPERTENSION [None]
  - RENAL CELL CARCINOMA [None]
